FAERS Safety Report 22156731 (Version 1)
Quarter: 2023Q1

REPORT INFORMATION
  Report Type: Spontaneous
  Country: DE (occurrence: DE)
  Receive Date: 20230330
  Receipt Date: 20230330
  Transmission Date: 20230418
  Serious: Yes (Life-Threatening, Hospitalization, Other)
  Sender: FDA-Public Use
  Company Number: None

PATIENT
  Age: 52 Year
  Sex: Male
  Weight: 75 kg

DRUGS (2)
  1. IBUPROFEN [Suspect]
     Active Substance: IBUPROFEN
     Indication: Pain
     Dosage: 5-6
     Route: 048
     Dates: start: 202302
  2. IBUPROFEN [Suspect]
     Active Substance: IBUPROFEN
     Indication: Back pain
     Dosage: 8-9 PER DAY
     Route: 048
     Dates: start: 20230102

REACTIONS (8)
  - Abdominal pain lower [Recovering/Resolving]
  - Overdose [Recovering/Resolving]
  - Acute kidney injury [Recovering/Resolving]
  - Gastritis erosive [Unknown]
  - Oesophageal haemorrhage [Unknown]
  - Hypokalaemia [Unknown]
  - Gastroduodenal haemorrhage [Unknown]
  - Gastrooesophageal reflux disease [Unknown]

NARRATIVE: CASE EVENT DATE: 20230101
